FAERS Safety Report 6655328-1 (Version None)
Quarter: 2010Q1

REPORT INFORMATION
  Report Type: 
  Country: None (occurrence: None)
  Receive Date: 20100318
  Receipt Date: 20091210
  Transmission Date: 20100710
  Serious: Yes (Other)
  Sender: FDA-Public Use
  Company Number: 2009289228

PATIENT
  Age: 71 Year
  Sex: Male
  Weight: 83.5 kg

DRUGS (4)
  1. XALATAN [Suspect]
     Indication: GLAUCOMA
     Dosage: 1 DROP IN EACH EYE, 1X/DAY, OPHTHALMIC
     Route: 047
  2. DORZOLAMIDE HYDROCHLORIDE/TIMOLOL MALEATE (DORZOLAMIDE HYDROCHLORIDE, [Concomitant]
  3. PREDNISOLONE [Concomitant]
  4. ALPHAGAN [Concomitant]

REACTIONS (1)
  - MACULAR OEDEMA [None]
